FAERS Safety Report 20016098 (Version 1)
Quarter: 2021Q4

REPORT INFORMATION
  Report Type: Spontaneous
  Country: US (occurrence: None)
  Receive Date: 20211102
  Receipt Date: 20211102
  Transmission Date: 20220303
  Serious: Yes (Hospitalization)
  Sender: FDA-Public Use
  Company Number: None

PATIENT
  Sex: Male
  Weight: 112 kg

DRUGS (3)
  1. CYTARABINE [Suspect]
     Active Substance: CYTARABINE
     Dates: end: 20211011
  2. ZINECARD [Concomitant]
     Active Substance: DEXRAZOXANE HYDROCHLORIDE
     Dates: end: 20211011
  3. MITOXANTRONE HYDROCHLORIDE [Concomitant]
     Active Substance: MITOXANTRONE HYDROCHLORIDE
     Dates: end: 20211011

REACTIONS (8)
  - Pyrexia [None]
  - Pyrexia [None]
  - Hypotension [None]
  - Tachycardia [None]
  - Chest discomfort [None]
  - Septic shock [None]
  - Bacteraemia [None]
  - Blood culture positive [None]

NARRATIVE: CASE EVENT DATE: 20211018
